FAERS Safety Report 16052023 (Version 2)
Quarter: 2019Q1

REPORT INFORMATION
  Report Type: Spontaneous
  Country: US (occurrence: US)
  Receive Date: 20190308
  Receipt Date: 20190328
  Transmission Date: 20190418
  Serious: No
  Sender: FDA-Public Use
  Company Number: US-SA-2019SA059710

PATIENT
  Age: 48 Year
  Sex: Female

DRUGS (1)
  1. LANTUS SOLOSTAR [Suspect]
     Active Substance: INSULIN GLARGINE
     Indication: TYPE 1 DIABETES MELLITUS
     Dosage: 60 U, QD
     Route: 065
     Dates: start: 2012

REACTIONS (4)
  - Device operational issue [Unknown]
  - Product dose omission [Unknown]
  - Malaise [Unknown]
  - Device breakage [Unknown]
